FAERS Safety Report 4645860-4 (Version None)
Quarter: 2005Q2

REPORT INFORMATION
  Report Type: 
  Country: None (occurrence: None)
  Receive Date: 20050425
  Receipt Date: 20050407
  Transmission Date: 20051028
  Serious: Yes (Other)
  Sender: FDA-Public Use
  Company Number: 8010052

PATIENT
  Sex: Male
  Weight: 2.39 kg

DRUGS (3)
  1. LEVETIRACETAM [Suspect]
     Indication: PARTIAL SEIZURES
     Dosage: 2000 MG /D TRP
     Route: 064
  2. OXCARBAZEPINE [Concomitant]
  3. LAMOTRIGINE [Concomitant]

REACTIONS (3)
  - DRUG EXPOSURE DURING PREGNANCY [None]
  - FOETAL GROWTH RETARDATION [None]
  - SMALL FOR DATES BABY [None]
